FAERS Safety Report 10362299 (Version 1)
Quarter: 2014Q1

REPORT INFORMATION
  Report Type: Spontaneous
  Country: US (occurrence: None)
  Receive Date: 20140306
  Receipt Date: 20140306
  Transmission Date: 20141002
  Serious: Yes (Other)
  Sender: FDA-Public Use
  Company Number: 163-21880-13060843

PATIENT
  Age: 74 Year
  Sex: Female

DRUGS (1)
  1. REVLIMID (LENALIDOMIDE) (15 MILLIGRAM, CAPSULES) [Suspect]
     Indication: PLASMA CELL MYELOMA
     Dosage: 09-FEB-2012 - TEMPORARILY INTERRUPTED?15 MG, 21 IN 21 D, PO
     Route: 048
     Dates: start: 20120209

REACTIONS (1)
  - Thrombosis [None]
